FAERS Safety Report 6019561-4 (Version None)
Quarter: 2008Q4

REPORT INFORMATION
  Report Type: 
  Country: None (occurrence: None)
  Receive Date: 20081224
  Receipt Date: 20081215
  Transmission Date: 20090506
  Serious: Yes (Hospitalization, Other)
  Sender: FDA-Public Use
  Company Number: PHHY2008DE30537

PATIENT
  Sex: Male
  Weight: 10 kg

DRUGS (1)
  1. LOCOL / XU [Suspect]
     Indication: ACCIDENTAL EXPOSURE
     Dosage: UP TO 17 TABLETS (80 UNK)
     Route: 048
     Dates: start: 20081113

REACTIONS (6)
  - ACCIDENTAL EXPOSURE [None]
  - ACCIDENTAL OVERDOSE [None]
  - DIARRHOEA [None]
  - GASTROENTERITIS [None]
  - INFECTION [None]
  - VOMITING [None]
